FAERS Safety Report 5627833-8 (Version None)
Quarter: 2008Q1

REPORT INFORMATION
  Report Type: 
  Country: None (occurrence: None)
  Receive Date: 20080215
  Receipt Date: 20080208
  Transmission Date: 20080703
  Serious: Yes (Hospitalization)
  Sender: FDA-Public Use
  Company Number: FR-ASTRAZENECA-2008CG00222

PATIENT
  Age: 71 Year
  Sex: Male

DRUGS (10)
  1. CASODEX [Suspect]
     Indication: PROSTATE CANCER
     Route: 048
     Dates: start: 20080101, end: 20080102
  2. PREVISCAN [Interacting]
     Route: 048
  3. PLAVIX [Interacting]
     Route: 048
  4. AMLOR [Concomitant]
  5. PRAXILENE [Concomitant]
  6. FONZYLANE [Concomitant]
  7. IRBESARTAN [Concomitant]
  8. ALLOPURINOL [Concomitant]
  9. AMIODARONE HCL [Concomitant]
  10. FUROSEMIDE [Concomitant]

REACTIONS (1)
  - PULMONARY ALVEOLAR HAEMORRHAGE [None]
